FAERS Safety Report 6503969-4 (Version None)
Quarter: 2009Q4

REPORT INFORMATION
  Report Type: 
  Country: None (occurrence: None)
  Receive Date: 20091216
  Receipt Date: 20091216
  Transmission Date: 20100525
  Serious: No
  Sender: FDA-Public Use
  Company Number: None

PATIENT
  Age: 60 Year
  Sex: Male
  Weight: 84.369 kg

DRUGS (2)
  1. PREDNISOLONE TAB [Suspect]
     Indication: FACIAL PALSY
     Dosage: 3 A DAY FOR 5 DAYS 2-1 DAILY
     Dates: start: 20091127
  2. PREDNISOLONE TAB [Suspect]
     Indication: TRANSIENT ISCHAEMIC ATTACK
     Dosage: 3 A DAY FOR 5 DAYS 2-1 DAILY
     Dates: start: 20091127

REACTIONS (5)
  - ABDOMINAL PAIN UPPER [None]
  - DYSPEPSIA [None]
  - HICCUPS [None]
  - MIDDLE INSOMNIA [None]
  - VOMITING [None]
